FAERS Safety Report 19940533 (Version 6)
Quarter: 2024Q2

REPORT INFORMATION
  Report Type: Spontaneous
  Country: US (occurrence: US)
  Receive Date: 20211011
  Receipt Date: 20240531
  Transmission Date: 20240716
  Serious: Yes (Hospitalization, Disabling, Other)
  Sender: FDA-Public Use
  Company Number: US-ORGANON-O2110USA000687

PATIENT
  Sex: Female
  Weight: 69.4 kg

DRUGS (3)
  1. SINGULAIR [Suspect]
     Active Substance: MONTELUKAST SODIUM
     Dosage: UNK
     Route: 048
     Dates: end: 2012
  2. SINGULAIR [Suspect]
     Active Substance: MONTELUKAST SODIUM
     Dosage: UNK
     Route: 048
     Dates: end: 2009
  3. SINGULAIR [Suspect]
     Active Substance: MONTELUKAST SODIUM
     Dosage: UNK
     Route: 048
     Dates: start: 2015

REACTIONS (26)
  - Affective disorder [Not Recovered/Not Resolved]
  - Eating disorder [Not Recovered/Not Resolved]
  - Neuropsychological symptoms [Not Recovered/Not Resolved]
  - Major depression [Unknown]
  - Bipolar disorder [Unknown]
  - Intentional self-injury [Unknown]
  - Suicide attempt [Unknown]
  - Anxiety [Unknown]
  - Seizure [Recovered/Resolved]
  - Hallucination [Unknown]
  - Suicidal ideation [Unknown]
  - Seizure [Not Recovered/Not Resolved]
  - Night sweats [Unknown]
  - Migraine [Unknown]
  - Feeling abnormal [Unknown]
  - Obsessive-compulsive disorder [Unknown]
  - Dysphemia [Unknown]
  - Nightmare [Unknown]
  - Tic [Unknown]
  - Tremor [Unknown]
  - Depressed mood [Unknown]
  - Poor quality sleep [Unknown]
  - Somnambulism [Unknown]
  - Headache [Unknown]
  - Fatigue [Unknown]
  - Maternal exposure during pregnancy [Recovered/Resolved]

NARRATIVE: CASE EVENT DATE: 19940101
